FAERS Safety Report 8806984 (Version 1)
Quarter: 2012Q4

REPORT INFORMATION
  Report Type: 
  Country: US (occurrence: US)
  Receive Date: 20120925
  Receipt Date: 20120925
  Transmission Date: 20130627
  Serious: Yes (Other)
  Sender: FDA-Public Use
  Company Number: US-ROCHE-1126084

PATIENT
  Sex: Female

DRUGS (4)
  1. AVASTIN [Suspect]
     Indication: COLON CANCER
     Route: 065
     Dates: end: 20080529
  2. AVASTIN [Suspect]
     Indication: METASTASES TO LIVER
     Route: 065
     Dates: start: 20080717
  3. XELODA [Suspect]
     Indication: METASTASES TO LIVER
     Route: 065
     Dates: end: 20080529
  4. XELODA [Suspect]
     Indication: COLON CANCER
     Route: 065
     Dates: start: 20080717

REACTIONS (1)
  - Disease progression [Unknown]
